FAERS Safety Report 8358824-4 (Version None)
Quarter: 2012Q2

REPORT INFORMATION
  Report Type: 
  Country: None (occurrence: None)
  Receive Date: 20120515
  Receipt Date: 20120508
  Transmission Date: 20120825
  Serious: Yes (Congenital Anomaly, Other)
  Sender: FDA-Public Use
  Company Number: PHHY2012DE039585

PATIENT

DRUGS (5)
  1. CELLCEPT [Suspect]
     Dosage: (MATERNAL DOSE: 0.5 G/DAY)
     Route: 064
  2. ZOLPIDEM [Suspect]
     Route: 064
  3. ESCITALOPRAM [Suspect]
     Route: 064
  4. LORAZEPAM [Suspect]
     Route: 064
  5. MYFORTIC [Suspect]
     Dosage: (MATERNAL DOSE: 0.5 G/DAY)
     Route: 064

REACTIONS (4)
  - TRACHEAL ATRESIA [None]
  - OESOPHAGEAL ATRESIA [None]
  - PREMATURE BABY [None]
  - FOETAL EXPOSURE DURING PREGNANCY [None]
